FAERS Safety Report 20901481 (Version 3)
Quarter: 2022Q4

REPORT INFORMATION
  Report Type: Report from Study
  Country: IL (occurrence: IL)
  Receive Date: 20220601
  Receipt Date: 20221228
  Transmission Date: 20230113
  Serious: Yes (Hospitalization, Other)
  Sender: FDA-Public Use
  Company Number: IL-NOVARTISPH-NVSC2020IL323317

PATIENT
  Age: 15 Year
  Sex: Male
  Weight: 67 kg

DRUGS (12)
  1. TRAMETINIB [Suspect]
     Active Substance: TRAMETINIB
     Indication: Neurofibromatosis
     Dosage: 1.5 MG (PER DAY)
     Route: 048
     Dates: start: 20200924, end: 20201116
  2. TRAMETINIB [Suspect]
     Active Substance: TRAMETINIB
     Indication: Optic glioma
     Dosage: 1 MG, PER DAY
     Route: 048
     Dates: start: 20201116
  3. TRAMETINIB [Suspect]
     Active Substance: TRAMETINIB
     Dosage: UNK
     Route: 065
     Dates: start: 20210124
  4. TRAMETINIB [Suspect]
     Active Substance: TRAMETINIB
     Dosage: 1 MG
     Route: 048
     Dates: start: 20210204
  5. TRAMETINIB [Suspect]
     Active Substance: TRAMETINIB
     Dosage: 0.5 MG
     Route: 048
     Dates: start: 20210420, end: 20210428
  6. TRAMETINIB [Suspect]
     Active Substance: TRAMETINIB
     Dosage: 0.5/1 MG ALTERNATING DAYS
     Route: 048
     Dates: start: 20210527, end: 20211221
  7. TRAMETINIB [Suspect]
     Active Substance: TRAMETINIB
     Dosage: 1.5 MG
     Route: 048
     Dates: start: 20220112
  8. TRAMETINIB [Suspect]
     Active Substance: TRAMETINIB
     Dosage: 1 MG
     Route: 048
     Dates: start: 20220420
  9. TRAMETINIB [Suspect]
     Active Substance: TRAMETINIB
     Dosage: 0.025 MG/KG, QD
     Route: 065
  10. ENALAPRIL [Concomitant]
     Active Substance: ENALAPRIL
     Indication: Blood pressure increased
     Dosage: 5 MG X1 DAY
     Route: 065
  11. CLOXACILLIN SODIUM [Concomitant]
     Active Substance: CLOXACILLIN SODIUM
     Indication: Product used for unknown indication
     Dosage: UNK
     Route: 065
  12. PREDNISONE [Concomitant]
     Active Substance: PREDNISONE
     Indication: Skin infection
     Dosage: 30 MG X2 DAY
     Route: 048
     Dates: start: 20211221, end: 20211222

REACTIONS (27)
  - Cellulitis [Recovering/Resolving]
  - Pyrexia [Recovering/Resolving]
  - Skin infection [Unknown]
  - Staphylococcal infection [Unknown]
  - Pain in extremity [Recovered/Resolved with Sequelae]
  - Condition aggravated [Recovered/Resolved with Sequelae]
  - Quality of life decreased [Recovering/Resolving]
  - Gingival hypertrophy [Not Recovered/Not Resolved]
  - Eczema [Recovered/Resolved]
  - Eyelid rash [Unknown]
  - Onychalgia [Unknown]
  - Localised oedema [Unknown]
  - Onycholysis [Unknown]
  - Bone loss [Unknown]
  - Gingival recession [Unknown]
  - Gingivitis [Recovered/Resolved]
  - Neoplasm [Unknown]
  - Visual impairment [Unknown]
  - Gingival bleeding [Not Recovered/Not Resolved]
  - Decreased appetite [Unknown]
  - Abdominal pain [Unknown]
  - Paronychia [Recovering/Resolving]
  - Erythema [Unknown]
  - Rash [Recovered/Resolved]
  - Nausea [Unknown]
  - Oedema peripheral [Not Recovered/Not Resolved]
  - Rash [Recovered/Resolved]

NARRATIVE: CASE EVENT DATE: 20201016
